FAERS Safety Report 7338525-1 (Version None)
Quarter: 2011Q1

REPORT INFORMATION
  Report Type: 
  Country: None (occurrence: None)
  Receive Date: 20110210
  Receipt Date: 20101201
  Transmission Date: 20110831
  Serious: No
  Sender: FDA-Public Use
  Company Number: 1000017548

PATIENT
  Sex: Female

DRUGS (4)
  1. SAVELLA [Suspect]
     Dosage: SEE IMAGE
     Route: 048
     Dates: start: 20090601, end: 20090601
  2. SAVELLA [Suspect]
     Dosage: SEE IMAGE
     Route: 048
     Dates: start: 20090601, end: 20090601
  3. SAVELLA [Suspect]
     Dosage: SEE IMAGE
     Route: 048
     Dates: start: 20090601, end: 20090601
  4. SAVELLA [Suspect]
     Dosage: SEE IMAGE
     Route: 048
     Dates: start: 20090601

REACTIONS (2)
  - VOMITING [None]
  - ABDOMINAL DISCOMFORT [None]
